FAERS Safety Report 5410808-1 (Version None)
Quarter: 2007Q3

REPORT INFORMATION
  Report Type: 
  Country: None (occurrence: None)
  Receive Date: 20070810
  Receipt Date: 20070730
  Transmission Date: 20080115
  Serious: Yes (Hospitalization)
  Sender: FDA-Public Use
  Company Number: PHHO2006US16453

PATIENT
  Age: 65 Year
  Sex: Female
  Weight: 65.2 kg

DRUGS (7)
  1. TEGASEROD [Suspect]
     Indication: DYSPEPSIA
     Dosage: 6 MG, BID
     Route: 048
     Dates: start: 20051004, end: 20060803
  2. TOPROL-XL [Concomitant]
  3. PLAVIX [Concomitant]
  4. ASPIRIN [Concomitant]
  5. LEXAPRO [Concomitant]
  6. FEMARA [Concomitant]
  7. TEMAZEPAM [Concomitant]

REACTIONS (19)
  - ABDOMINAL DISTENSION [None]
  - CARDIAC STRESS TEST ABNORMAL [None]
  - CAROTID ARTERY STENOSIS [None]
  - CATHETERISATION CARDIAC [None]
  - CHEST DISCOMFORT [None]
  - CHEST PAIN [None]
  - CORONARY ARTERY DISEASE [None]
  - DYSPNOEA [None]
  - DYSPNOEA EXERTIONAL [None]
  - ELECTROCARDIOGRAM Q WAVE ABNORMAL [None]
  - EYE SWELLING [None]
  - HEART RATE INCREASED [None]
  - HYPERHIDROSIS [None]
  - ISCHAEMIA [None]
  - JOINT SWELLING [None]
  - NAUSEA [None]
  - OEDEMA PERIPHERAL [None]
  - STENT PLACEMENT [None]
  - THYROID FUNCTION TEST ABNORMAL [None]
